FAERS Safety Report 14141405 (Version 1)
Quarter: 2017Q4

REPORT INFORMATION
  Report Type: Spontaneous
  Country: IS (occurrence: IS)
  Receive Date: 20171030
  Receipt Date: 20171030
  Transmission Date: 20180321
  Serious: Yes (Hospitalization)
  Sender: FDA-Public Use
  Company Number: IS-TEVA-818321ISR

PATIENT
  Age: 58 Year
  Sex: Female

DRUGS (5)
  1. OLANZAPIN ACTAVIS 5 MG [Suspect]
     Active Substance: OLANZAPINE
     Indication: NAUSEA
     Dosage: 5 MILLIGRAM DAILY;
     Dates: start: 20170712, end: 20170715
  2. RITALIN UNO 30 MG [Concomitant]
  3. METADON ABCUR 5 MG [Concomitant]
     Active Substance: METHADONE HYDROCHLORIDE
  4. AFIPRAN 10 MG [Concomitant]
  5. ESCITALOPRAM BLUEFISH 15 MG [Concomitant]

REACTIONS (7)
  - Akathisia [Not Recovered/Not Resolved]
  - Dyskinesia [Not Recovered/Not Resolved]
  - Tremor [Not Recovered/Not Resolved]
  - Restlessness [Not Recovered/Not Resolved]
  - Hallucination, auditory [Not Recovered/Not Resolved]
  - Delirium [Not Recovered/Not Resolved]
  - Hallucination, visual [Not Recovered/Not Resolved]

NARRATIVE: CASE EVENT DATE: 20170712
